FAERS Safety Report 23273488 (Version 1)
Quarter: 2023Q4

REPORT INFORMATION
  Report Type: Spontaneous
  Country: US (occurrence: US)
  Receive Date: 20231207
  Receipt Date: 20231207
  Transmission Date: 20240110
  Serious: No
  Sender: FDA-Public Use
  Company Number: US-AMERICAN REGENT INC-2022003596

PATIENT
  Age: 39 Year
  Sex: Female
  Weight: 70.748 kg

DRUGS (3)
  1. VENOFER [Suspect]
     Active Substance: IRON SUCROSE
     Indication: Iron deficiency anaemia
     Dosage: 25 MILLIGRAM IN NS 100 ML (TEST DOSE)
     Route: 042
     Dates: start: 20180717, end: 20180717
  2. VENOFER [Suspect]
     Active Substance: IRON SUCROSE
     Dosage: 175 MILLIGRAM IN NS 250 ML
     Route: 042
     Dates: start: 20180717, end: 20180717
  3. BENADRYL [Concomitant]
     Active Substance: DIPHENHYDRAMINE HYDROCHLORIDE
     Indication: Premedication
     Dosage: 12.5 MILLIGRAM ONCE
     Route: 042
     Dates: start: 20180717, end: 20180717

REACTIONS (6)
  - Ill-defined disorder [Unknown]
  - Drug hypersensitivity [Unknown]
  - Off label use [Unknown]
  - Product dose omission issue [Unknown]
  - Product preparation issue [Unknown]
  - Incorrect product administration duration [Unknown]

NARRATIVE: CASE EVENT DATE: 20180701
